FAERS Safety Report 5152224-6 (Version None)
Quarter: 2006Q4

REPORT INFORMATION
  Report Type: 
  Country: None (occurrence: None)
  Receive Date: 20061116
  Receipt Date: 20061106
  Transmission Date: 20070319
  Serious: Yes (Other)
  Sender: FDA-Public Use
  Company Number: PHEH2006US13759

PATIENT
  Age: 74 Year
  Sex: Female

DRUGS (4)
  1. ZOMETA [Suspect]
     Indication: BREAST CANCER METASTATIC
     Dosage: UNK, UNK
     Route: 042
     Dates: start: 20040101, end: 20060929
  2. AROMASIN [Concomitant]
  3. VITAMINS [Concomitant]
  4. LIPITOR [Concomitant]

REACTIONS (3)
  - GINGIVAL INFECTION [None]
  - GINGIVAL OPERATION [None]
  - TOOTH EXTRACTION [None]
